FAERS Safety Report 16659156 (Version 3)
Quarter: 2019Q3

REPORT INFORMATION
  Report Type: Spontaneous
  Country: US (occurrence: US)
  Receive Date: 20190802
  Receipt Date: 20190821
  Transmission Date: 20191004
  Serious: Yes (Hospitalization)
  Sender: FDA-Public Use
  Company Number: US-ROCHE-2365010

PATIENT
  Age: 8 Decade
  Sex: Female
  Weight: 87 kg

DRUGS (1)
  1. CAPECITABINE. [Suspect]
     Active Substance: CAPECITABINE
     Indication: TRIPLE NEGATIVE BREAST CANCER
     Dosage: 21-DAYS CYCLE
     Route: 048

REACTIONS (3)
  - Pneumoperitoneum [Recovered/Resolved]
  - Intestinal perforation [Recovered/Resolved]
  - Pneumatosis intestinalis [Recovered/Resolved]
